FAERS Safety Report 21679542 (Version 1)
Quarter: 2022Q4

REPORT INFORMATION
  Report Type: Spontaneous
  Country: US (occurrence: US)
  Receive Date: 20221205
  Receipt Date: 20221205
  Transmission Date: 20230112
  Serious: Yes (Other)
  Sender: FDA-Public Use
  Company Number: US-SA-SAC20221202000421

PATIENT
  Age: 52 Year
  Sex: Male

DRUGS (2)
  1. ELOCTATE [Suspect]
     Active Substance: EFMOROCTOCOG ALFA
     Indication: Factor VIII deficiency
     Dosage: 3565 U (3209-3921), Q4D OR AS NEEDED
     Route: 042
     Dates: start: 202209
  2. ELOCTATE [Suspect]
     Active Substance: EFMOROCTOCOG ALFA
     Indication: Factor VIII deficiency
     Dosage: 3565 U (3209-3921), Q4D OR AS NEEDED
     Route: 042
     Dates: start: 202209

REACTIONS (1)
  - Haemorrhage [Not Recovered/Not Resolved]
